FAERS Safety Report 7009589-X (Version None)
Quarter: 2010Q3

REPORT INFORMATION
  Report Type: 
  Country: None (occurrence: None)
  Receive Date: 20100903
  Receipt Date: 20091118
  Transmission Date: 20110219
  Serious: Yes (Other)
  Sender: FDA-Public Use
  Company Number: 2009291018

PATIENT
  Age: 57 Year
  Sex: Female
  Weight: 61.2 kg

DRUGS (4)
  1. DETROL LA [Suspect]
     Indication: POLLAKIURIA
     Dosage: 4 MG 1X/DAY ORAL
     Route: 048
     Dates: start: 20091027
  2. LISINOPRIL [Concomitant]
  3. ATENOLOL [Concomitant]
  4. TORADOL [Concomitant]

REACTIONS (2)
  - DYSURIA [None]
  - URINARY RETENTION [None]
